FAERS Safety Report 5447399-5 (Version None)
Quarter: 2007Q3

REPORT INFORMATION
  Report Type: 
  Country: None (occurrence: None)
  Receive Date: 20070905
  Receipt Date: 20070905
  Transmission Date: 20080115
  Serious: No
  Sender: FDA-Public Use
  Company Number: None

PATIENT
  Age: 62 Year
  Sex: Female
  Weight: 81.6475 kg

DRUGS (4)
  1. LEVAQUIN [Suspect]
     Indication: BRONCHITIS
     Dosage: 750MG  QD  PO
     Route: 048
     Dates: start: 20070718, end: 20070728
  2. LEVAQUIN [Suspect]
     Indication: SINUSITIS
     Dosage: 750MG  QD  PO
     Route: 048
     Dates: start: 20070718, end: 20070728
  3. LEVAQUIN [Suspect]
     Indication: BRONCHITIS
     Dosage: 750MG  QD  PO
     Route: 048
     Dates: start: 20070731, end: 20070803
  4. LEVAQUIN [Suspect]
     Indication: SINUSITIS
     Dosage: 750MG  QD  PO
     Route: 048
     Dates: start: 20070731, end: 20070803

REACTIONS (5)
  - DYSGEUSIA [None]
  - INSOMNIA [None]
  - OEDEMA PERIPHERAL [None]
  - PITTING OEDEMA [None]
  - RESTLESSNESS [None]
